FAERS Safety Report 7179051-2 (Version None)
Quarter: 2010Q4

REPORT INFORMATION
  Report Type: 
  Country: None (occurrence: None)
  Receive Date: 20101221
  Receipt Date: 20101220
  Transmission Date: 20110411
  Serious: Yes (Hospitalization)
  Sender: FDA-Public Use
  Company Number: PHHO2009BE11395

PATIENT
  Sex: Female
  Weight: 55 kg

DRUGS (6)
  1. CGS 20267 T30748+ [Suspect]
     Indication: BREAST CANCER
     Dosage: DOUBLE BLIND
     Route: 048
     Dates: start: 20050201, end: 20071130
  2. TAMOXIFEN CITRATE [Suspect]
  3. DUOVENT [Concomitant]
     Indication: ASTHMA
     Dosage: UNK
  4. BISOPROLOL [Concomitant]
     Indication: HYPERTENSION
  5. FLUTICASONE PROPIONATE [Concomitant]
     Indication: ASTHMA
  6. ALENDRONATE SODIUM [Concomitant]
     Indication: OSTEOPOROSIS

REACTIONS (2)
  - DERMATITIS ATOPIC [None]
  - ERYSIPELAS [None]
